FAERS Safety Report 6791441-6 (Version None)
Quarter: 2010Q2

REPORT INFORMATION
  Report Type: 
  Country: None (occurrence: None)
  Receive Date: 20100624
  Receipt Date: 20080716
  Transmission Date: 20101027
  Serious: No
  Sender: FDA-Public Use
  Company Number: US-PFIZER INC-2008056844

PATIENT
  Age: 15 Year
  Weight: 90.72 kg

DRUGS (1)
  1. GEODON [Suspect]
     Indication: SCHIZOPHRENIA

REACTIONS (1)
  - DRUG INEFFECTIVE [None]
